FAERS Safety Report 11673075 (Version 3)
Quarter: 2015Q4

REPORT INFORMATION
  Report Type: Spontaneous
  Country: CA (occurrence: CA)
  Receive Date: 20151028
  Receipt Date: 20151218
  Transmission Date: 20160304
  Serious: Yes (Hospitalization)
  Sender: FDA-Public Use
  Company Number: CA-ROCHE-1651453

PATIENT
  Age: 63 Year
  Sex: Female

DRUGS (6)
  1. SYMBICORT [Concomitant]
     Active Substance: BUDESONIDE\FORMOTEROL FUMARATE DIHYDRATE
  2. XOLAIR [Suspect]
     Active Substance: OMALIZUMAB
     Indication: ASTHMA
     Route: 058
     Dates: start: 20150226
  3. XOLAIR [Suspect]
     Active Substance: OMALIZUMAB
     Route: 058
     Dates: start: 201509
  4. TUDORZA PRESSAIR [Concomitant]
     Active Substance: ACLIDINIUM BROMIDE
  5. ALVESCO [Concomitant]
     Active Substance: CICLESONIDE
  6. PREDNISONE. [Concomitant]
     Active Substance: PREDNISONE

REACTIONS (9)
  - Stress [Unknown]
  - Full blood count increased [Unknown]
  - Eye disorder [Unknown]
  - Nasopharyngitis [Unknown]
  - Arteriospasm coronary [Unknown]
  - Myocardial infarction [Unknown]
  - Chest pain [Unknown]
  - Cataract [Unknown]
  - Bone disorder [Unknown]

NARRATIVE: CASE EVENT DATE: 20150409
